FAERS Safety Report 4871548-0 (Version None)
Quarter: 2005Q4

REPORT INFORMATION
  Report Type: 
  Country: None (occurrence: None)
  Receive Date: 20051230
  Receipt Date: 20051214
  Transmission Date: 20060501
  Serious: Yes (Death, Hospitalization, Other)
  Sender: FDA-Public Use
  Company Number: CZ200512000472

PATIENT
  Age: 36 Year
  Sex: Female

DRUGS (3)
  1. ZYPREXA [Suspect]
     Indication: BIPOLAR DISORDER
     Dosage: 10 MG, DAILY (1/D), ORAL
     Route: 048
     Dates: start: 20041229
  2. VALERIAN ROOT (VALERIANAN OFFICINALIS ROOT) [Concomitant]
  3. MARVELON /NET/(DESOGESTREL, ETHINYLESTRADIOL) [Concomitant]

REACTIONS (14)
  - ANOXIC ENCEPHALOPATHY [None]
  - ASTHENIA [None]
  - BRAIN DEATH [None]
  - CARDIO-RESPIRATORY ARREST [None]
  - COMA [None]
  - ELECTROCARDIOGRAM QT PROLONGED [None]
  - FALL [None]
  - HYPERHIDROSIS [None]
  - HYPOTHERMIA [None]
  - LOSS OF CONSCIOUSNESS [None]
  - MINERAL METABOLISM DISORDER [None]
  - MYDRIASIS [None]
  - POLYURIA [None]
  - WEIGHT INCREASED [None]
